FAERS Safety Report 18227343 (Version 1)
Quarter: 2020Q3

REPORT INFORMATION
  Report Type: Report from Study
  Country: US (occurrence: US)
  Receive Date: 20200903
  Receipt Date: 20200903
  Transmission Date: 20201103
  Serious: Yes (Other)
  Sender: FDA-Public Use
  Company Number: US-MYLANLABS-2020M1076013

PATIENT
  Sex: Male

DRUGS (2)
  1. CARBIDOPA/LEVODOPA [Suspect]
     Active Substance: CARBIDOPA\LEVODOPA
     Dosage: LEVODOPA/CARBIDOPA THERAPY WAS CONTINUED AT A TOTAL DAILY DOSE OF 750/75 MG IN THREE DIVIDED DOSES
     Route: 048
  2. CARBIDOPA/LEVODOPA [Suspect]
     Active Substance: CARBIDOPA\LEVODOPA
     Indication: PERRY SYNDROME
     Dosage: LEVODOPA/CARBIDOPA 250/25MG TOTAL DAILY DOSE DIVIDED INTO 2 DOSES,DOSE WAS PROGRESSIVELY..
     Route: 048

REACTIONS (2)
  - On and off phenomenon [Unknown]
  - Off label use [Unknown]
